FAERS Safety Report 7592097-5 (Version None)
Quarter: 2011Q3

REPORT INFORMATION
  Report Type: 
  Country: None (occurrence: None)
  Receive Date: 20110706
  Receipt Date: 20110701
  Transmission Date: 20111222
  Serious: Yes (Other)
  Sender: FDA-Public Use
  Company Number: NL-SANOFI-AVENTIS-2011SA042032

PATIENT
  Age: 76 Year
  Sex: Male

DRUGS (11)
  1. ROSUVASTATIN [Concomitant]
     Route: 048
     Dates: start: 20101009
  2. FUROSEMIDE [Suspect]
     Route: 048
     Dates: end: 20110208
  3. FUROSEMIDE [Suspect]
     Route: 048
     Dates: start: 20110209
  4. DENOREX [Concomitant]
  5. ACENOCOUMAROL [Concomitant]
     Route: 048
  6. FUROSEMIDE [Suspect]
     Route: 048
     Dates: end: 20110518
  7. DOVOBET [Concomitant]
  8. DRONEDARONE HCL [Suspect]
     Indication: ATRIAL FIBRILLATION
     Route: 048
     Dates: start: 20101111, end: 20110314
  9. METOPROLOL TARTRATE [Concomitant]
  10. APROVEL [Concomitant]
     Route: 048
  11. SIMVASTATIN [Concomitant]
     Dates: end: 20101208

REACTIONS (1)
  - DERMATITIS PSORIASIFORM [None]
